FAERS Safety Report 4809231-X (Version None)
Quarter: 2005Q4

REPORT INFORMATION
  Report Type: 
  Country: None (occurrence: None)
  Receive Date: 20051025
  Receipt Date: 20051013
  Transmission Date: 20060501
  Serious: Yes (Hospitalization)
  Sender: FDA-Public Use
  Company Number: 2005CG01704

PATIENT
  Age: 23 Year
  Sex: Male

DRUGS (5)
  1. DIPRIVAN [Suspect]
     Indication: ANAESTHESIA
     Route: 042
     Dates: start: 20050831, end: 20050831
  2. MORPHINE [Suspect]
     Dates: start: 20050831, end: 20050831
  3. ULTIVA [Suspect]
     Indication: ANAESTHESIA
     Dates: start: 20050831, end: 20050831
  4. PERFALGAN [Suspect]
     Dates: start: 20050831, end: 20050831
  5. CEFAZOLIN [Suspect]
     Dates: start: 20050831

REACTIONS (3)
  - JAUNDICE [None]
  - OEDEMATOUS PANCREATITIS [None]
  - POST PROCEDURAL COMPLICATION [None]
